FAERS Safety Report 5649219-2 (Version None)
Quarter: 2008Q1

REPORT INFORMATION
  Report Type: 
  Country: None (occurrence: None)
  Receive Date: 20080304
  Receipt Date: 20071129
  Transmission Date: 20080703
  Serious: No
  Sender: FDA-Public Use
  Company Number: CA-BAYER-200715749NA

PATIENT

DRUGS (1)
  1. GADOVIST [Suspect]

REACTIONS (3)
  - COUGH [None]
  - DYSPNOEA [None]
  - UNEVALUABLE EVENT [None]
